FAERS Safety Report 21040050 (Version 5)
Quarter: 2022Q3

REPORT INFORMATION
  Report Type: Spontaneous
  Country: JP (occurrence: JP)
  Receive Date: 20220704
  Receipt Date: 20220907
  Transmission Date: 20221027
  Serious: Yes (Death, Life-Threatening, Hospitalization, Other)
  Sender: FDA-Public Use
  Company Number: JP-GSKJP-JP2022JPN097325

PATIENT
  Sex: Male

DRUGS (6)
  1. BOTOX [Suspect]
     Active Substance: ONABOTULINUMTOXINA
     Indication: Torticollis
     Dosage: 60 UNITS, SINGLE
     Route: 030
     Dates: start: 20220530, end: 20220530
  2. TRAMADOL [Concomitant]
     Active Substance: TRAMADOL
     Indication: Analgesic therapy
     Dosage: 50 MG, TID
     Dates: start: 20220526, end: 20220614
  3. ACETAMINOPHEN [Concomitant]
     Active Substance: ACETAMINOPHEN
     Indication: Analgesic therapy
     Dosage: 0.4 G, TID
     Dates: start: 20220512, end: 20220614
  4. NAUZELIN [Concomitant]
     Active Substance: DOMPERIDONE
     Indication: Vomiting
     Dosage: 10 MG, TID
     Dates: start: 20220530, end: 20220614
  5. MAGNESIUM OXIDE [Concomitant]
     Active Substance: MAGNESIUM OXIDE
     Indication: Constipation
     Dosage: 0.5 G, BID
     Dates: start: 20220526, end: 20220614
  6. DAYVIGO [Concomitant]
     Active Substance: LEMBOREXANT
     Indication: Insomnia
     Dosage: 5 MG, QD
     Dates: start: 20220517, end: 20220614

REACTIONS (8)
  - Sepsis [Fatal]
  - Pneumonia [Fatal]
  - Disseminated intravascular coagulation [Fatal]
  - Depressed level of consciousness [Not Recovered/Not Resolved]
  - Hypoglycaemia [Recovering/Resolving]
  - C-reactive protein increased [Not Recovered/Not Resolved]
  - Platelet count decreased [Not Recovered/Not Resolved]
  - Multiple organ dysfunction syndrome [Fatal]

NARRATIVE: CASE EVENT DATE: 20220601
